FAERS Safety Report 5336665-X (Version None)
Quarter: 2007Q2

REPORT INFORMATION
  Report Type: 
  Country: None (occurrence: None)
  Receive Date: 20070529
  Receipt Date: 20070517
  Transmission Date: 20071010
  Serious: Yes (Hospitalization, Other)
  Sender: FDA-Public Use
  Company Number: US-AMGEN-STX225343

PATIENT
  Sex: Female

DRUGS (2)
  1. ENBREL [Suspect]
     Indication: RHEUMATOID ARTHRITIS
     Route: 058
     Dates: start: 20040223
  2. METHOTREXATE [Concomitant]
     Route: 058
     Dates: start: 19930101

REACTIONS (7)
  - ARTHRALGIA [None]
  - BACTERIAL INFECTION [None]
  - DEHYDRATION [None]
  - DIARRHOEA [None]
  - JOINT STIFFNESS [None]
  - NAUSEA [None]
  - VOMITING [None]
